FAERS Safety Report 12509929 (Version 2)
Quarter: 2016Q3

REPORT INFORMATION
  Report Type: Spontaneous
  Country: CN (occurrence: CN)
  Receive Date: 20160629
  Receipt Date: 20160704
  Transmission Date: 20161109
  Serious: No
  Sender: FDA-Public Use
  Company Number: CN-009507513-1411CHN009038

PATIENT
  Age: 49 Year
  Sex: Female
  Weight: 65 kg

DRUGS (11)
  1. EMEND [Suspect]
     Active Substance: APREPITANT
     Indication: PROPHYLAXIS OF NAUSEA AND VOMITING
     Dosage: 125 MG, ONCE; DAY 1
     Route: 048
     Dates: start: 20141107, end: 20141107
  2. EMEND [Suspect]
     Active Substance: APREPITANT
     Dosage: 80 MG, ONCE; DAY 2
     Route: 048
     Dates: start: 20141108, end: 20141108
  3. PIRARUBICIN [Concomitant]
     Active Substance: PIRARUBICIN
     Indication: CHEMOTHERAPY
     Dosage: DOSE/SCHEDULE 52.9MG/M2 (DAY 1), TREATMENT CYCLE 1, CYCLICAL
     Route: 042
     Dates: start: 20141107, end: 20141107
  4. DEXAMETHASONE. [Concomitant]
     Active Substance: DEXAMETHASONE
     Indication: VOMITING
     Dosage: 10 MG, QD
     Route: 042
     Dates: start: 20141107, end: 20141107
  5. EMEND [Suspect]
     Active Substance: APREPITANT
     Dosage: 80 MG, ONCE; DAY 3
     Route: 048
     Dates: start: 20141109, end: 20141109
  6. LENTINAN [Concomitant]
     Active Substance: LENTINAN
     Indication: IMMUNE ENHANCEMENT THERAPY
     Dosage: 2 MG, QD
     Route: 042
     Dates: start: 20141107, end: 20141107
  7. PALONOSETRON HYDROCHLORIDE. [Concomitant]
     Active Substance: PALONOSETRON HYDROCHLORIDE
     Indication: VOMITING
     Dosage: 0.25, MG, QD
     Route: 042
     Dates: start: 20141107, end: 20141107
  8. PACLITAXEL. [Concomitant]
     Active Substance: PACLITAXEL
     Indication: CHEMOTHERAPY
     Dosage: 88.2 MG/M2, TREATMENT REGIMEN: PIRARUBICIN HYDROCHLORIDE AND PACLITAXEL, TREATMENT CYCLE: 1
     Route: 041
     Dates: start: 20141107, end: 20141107
  9. LANSOPRAZOLE. [Concomitant]
     Active Substance: LANSOPRAZOLE
     Indication: VOMITING
     Dosage: 30 MG, QD
     Route: 042
     Dates: start: 20141107, end: 20141207
  10. PHOSPHOCREATINE [Concomitant]
     Indication: PROPHYLAXIS
     Dosage: 2 G, QD
     Route: 042
     Dates: start: 20141107, end: 20141107
  11. CIMETIDINE [Concomitant]
     Active Substance: CIMETIDINE
     Indication: PROPHYLAXIS
     Dosage: 0.4 G, QD
     Route: 042
     Dates: start: 20141107, end: 20141107

REACTIONS (1)
  - Constipation [Recovered/Resolved]

NARRATIVE: CASE EVENT DATE: 20141108
